FAERS Safety Report 9929805 (Version 2)
Quarter: 2014Q2

REPORT INFORMATION
  Report Type: Report from Study
  Country: US (occurrence: US)
  Receive Date: 20140227
  Receipt Date: 20140415
  Transmission Date: 20141212
  Serious: Yes (Death, Other)
  Sender: FDA-Public Use
  Company Number: US-MPIJNJ-2014MPI000632

PATIENT
  Age: 35 Year
  Sex: Male
  Weight: 71.65 kg

DRUGS (1)
  1. VELCADE [Suspect]
     Indication: PLASMA CELL MYELOMA
     Dosage: 1.3 MG/M2, Q4WEEKS DAYS 1,8,15
     Route: 058
     Dates: start: 20130913, end: 20131203

REACTIONS (2)
  - Multi-organ failure [Fatal]
  - Failure to thrive [Recovered/Resolved]
